FAERS Safety Report 19032312 (Version 1)
Quarter: 2021Q1

REPORT INFORMATION
  Report Type: Spontaneous
  Country: DE (occurrence: DE)
  Receive Date: 20210319
  Receipt Date: 20210319
  Transmission Date: 20210420
  Serious: Yes (Hospitalization, Other)
  Sender: FDA-Public Use
  Company Number: DE-TORRENT-00019840

PATIENT
  Sex: Female

DRUGS (2)
  1. ACICLOVIR 400 HEUMANN [Suspect]
     Active Substance: ACYCLOVIR
     Indication: HERPES DERMATITIS
     Dates: start: 20210131
  2. ACICLOVIR [Suspect]
     Active Substance: ACYCLOVIR
     Indication: HERPES DERMATITIS
     Dates: start: 20210121

REACTIONS (2)
  - Pneumonia viral [Not Recovered/Not Resolved]
  - Leukopenia [Not Recovered/Not Resolved]
